FAERS Safety Report 10786959 (Version 1)
Quarter: 2015Q1

REPORT INFORMATION
  Report Type: Spontaneous
  Country: US (occurrence: US)
  Receive Date: 20150211
  Receipt Date: 20150211
  Transmission Date: 20150721
  Serious: Yes (Other)
  Sender: FDA-Public Use
  Company Number: US-GLAXOSMITHKLINE-US2014036375

PATIENT
  Sex: Male

DRUGS (6)
  1. LAMICTAL [Suspect]
     Active Substance: LAMOTRIGINE
     Indication: SEIZURE
     Dosage: 200 MG, QD
     Route: 048
  2. SEROQUEL [Suspect]
     Active Substance: QUETIAPINE FUMARATE
  3. LAMICTAL [Suspect]
     Active Substance: LAMOTRIGINE
     Dosage: 100 MG, QD
  4. RISPERIDONE. [Suspect]
     Active Substance: RISPERIDONE
  5. LAMOTRIGINE. [Suspect]
     Active Substance: LAMOTRIGINE
     Indication: SEIZURE
  6. TOPIRAMATE. [Concomitant]
     Active Substance: TOPIRAMATE

REACTIONS (11)
  - Hallucination, auditory [Not Recovered/Not Resolved]
  - Amino acid level decreased [Unknown]
  - Vitamin D deficiency [Recovered/Resolved]
  - Myoclonic epilepsy [Unknown]
  - Blood creatinine abnormal [Unknown]
  - Psychotic disorder [Not Recovered/Not Resolved]
  - Dyskinesia [Unknown]
  - Bone disorder [Unknown]
  - Temporal lobe epilepsy [Unknown]
  - Renal disorder [Unknown]
  - Drug ineffective [Unknown]
